FAERS Safety Report 8740343 (Version 2)
Quarter: 2013Q4

REPORT INFORMATION
  Report Type: Spontaneous
  Country: US (occurrence: US)
  Receive Date: 20120823
  Receipt Date: 20131031
  Transmission Date: 20140711
  Serious: Yes (Hospitalization, Other)
  Sender: FDA-Public Use
  Company Number: US-009507513-2010SP031305

PATIENT
  Age: 19 Year
  Sex: Female
  Weight: 108.86 kg

DRUGS (1)
  1. NUVARING [Suspect]
     Indication: CONTRACEPTION
     Dates: start: 200601, end: 200606

REACTIONS (5)
  - Pulmonary embolism [Recovered/Resolved]
  - Deep vein thrombosis [Unknown]
  - Lung infiltration [Unknown]
  - Bacterial vaginosis [Unknown]
  - Blood disorder [Unknown]
